FAERS Safety Report 8580280-1 (Version None)
Quarter: 2012Q3

REPORT INFORMATION
  Report Type: 
  Country: None (occurrence: None)
  Receive Date: 20120808
  Receipt Date: 20120807
  Transmission Date: 20120928
  Serious: Yes (Hospitalization, Other)
  Sender: FDA-Public Use
  Company Number: US-FRI-1000031424

PATIENT
  Sex: Male
  Weight: 98 kg

DRUGS (11)
  1. BYSTOLIC [Suspect]
     Dosage: 10 MG
     Route: 048
     Dates: start: 20120509, end: 20120509
  2. METFORMIN HYDROCHLORIDE [Concomitant]
     Indication: DIABETES MELLITUS
     Dosage: 2000 MG
     Route: 048
  3. CLONIDINE [Suspect]
     Indication: HYPERTENSION
     Dosage: 0.4 MG
     Dates: end: 20120507
  4. FISH OIL [Concomitant]
  5. BYSTOLIC [Suspect]
     Indication: HYPERTENSION
     Dosage: 5 MG
     Route: 048
     Dates: start: 20120508, end: 20120508
  6. LISINOPRIL [Concomitant]
     Indication: HYPERTENSION
     Dosage: 40 MG
     Route: 048
  7. LASIX [Concomitant]
     Indication: CARDIAC FAILURE CONGESTIVE
     Dosage: 40 MG
     Route: 048
  8. NORVASC [Concomitant]
     Indication: HYPERTENSION
     Dosage: 10 MG
     Route: 048
  9. PLAVIX [Concomitant]
     Dosage: 75 MG
     Route: 048
  10. POTASSIUM [Concomitant]
  11. NITROSTAT [Concomitant]
     Dosage: 0.4 MG EVERY 5 MINUTES UP TO 3

REACTIONS (2)
  - THYROID MASS [None]
  - BLOOD PRESSURE INCREASED [None]
